FAERS Safety Report 4562645-8 (Version None)
Quarter: 2005Q1

REPORT INFORMATION
  Report Type: 
  Country: None (occurrence: None)
  Receive Date: 20050124
  Receipt Date: 20050111
  Transmission Date: 20050727
  Serious: Yes (Disabling, Other)
  Sender: FDA-Public Use
  Company Number: 2005011490

PATIENT
  Age: 62 Year
  Sex: Female

DRUGS (1)
  1. CELEBREX [Suspect]
     Indication: OSTEOARTHRITIS
     Dosage: 200 MG (200 MG, 1 IN 1 D)
     Dates: end: 20040101

REACTIONS (2)
  - BLINDNESS UNILATERAL [None]
  - OPTIC ISCHAEMIC NEUROPATHY [None]
